FAERS Safety Report 4802838-5 (Version None)
Quarter: 2005Q4

REPORT INFORMATION
  Report Type: 
  Country: None (occurrence: None)
  Receive Date: 20051013
  Receipt Date: 20050930
  Transmission Date: 20060501
  Serious: Yes (Other)
  Sender: FDA-Public Use
  Company Number: CERZ-11020

PATIENT
  Age: 32 Year
  Sex: Female

DRUGS (1)
  1. CEREZYME [Suspect]
     Indication: GAUCHER'S DISEASE
     Dosage: 1800 UNITS Q2WKS IV
     Route: 042

REACTIONS (4)
  - DRUG EXPOSURE DURING PREGNANCY [None]
  - HIP ARTHROPLASTY [None]
  - OSTEONECROSIS [None]
  - PREGNANCY [None]
